FAERS Safety Report 25171821 (Version 1)
Quarter: 2025Q2

REPORT INFORMATION
  Report Type: Spontaneous
  Country: US (occurrence: US)
  Receive Date: 20250408
  Receipt Date: 20250408
  Transmission Date: 20250717
  Serious: Yes (Hospitalization)
  Sender: SCILEX PHARMACEUTICALS
  Company Number: US-SCILEX PHARMACEUTICALS INC.-US-SOR-25-00089

PATIENT
  Age: 60 Year
  Sex: Female

DRUGS (1)
  1. LIDOCAINE [Suspect]
     Active Substance: LIDOCAINE
     Indication: Neuralgia
     Route: 061

REACTIONS (1)
  - Pain [Unknown]
